FAERS Safety Report 13077751 (Version 6)
Quarter: 2017Q3

REPORT INFORMATION
  Report Type: Report from Study
  Country: US (occurrence: US)
  Receive Date: 20170101
  Receipt Date: 20170727
  Transmission Date: 20171127
  Serious: Yes (Other)
  Sender: FDA-Public Use
  Company Number: US-MALLINCKRODT-T201606736

PATIENT
  Age: 52 Year
  Sex: Female
  Weight: 74 kg

DRUGS (4)
  1. REPOSITORY CORTICOTROPIN INJECTION [Suspect]
     Active Substance: CORTICOTROPIN
     Dosage: 80 UNITS / 1 ML, EVERY 3 DAYS / EVERY 72 HOURS
     Route: 058
     Dates: start: 20160511
  2. GABAPENTIN. [Concomitant]
     Active Substance: GABAPENTIN
     Indication: PRODUCT USED FOR UNKNOWN INDICATION
  3. REPOSITORY CORTICOTROPIN INJECTION [Suspect]
     Active Substance: CORTICOTROPIN
     Indication: SARCOIDOSIS
     Dosage: 80 UNITS / 1 ML, EVERY 3 DAYS / EVERY 72 HOURS
     Route: 058
     Dates: start: 20160511
  4. REPOSITORY CORTICOTROPIN INJECTION [Suspect]
     Active Substance: CORTICOTROPIN
     Dosage: 80 UNITS / 1 ML, EVERY 3 DAYS / EVERY 72 HOURS
     Route: 058
     Dates: start: 2016

REACTIONS (13)
  - Insomnia [Not Recovered/Not Resolved]
  - Muscle spasms [Not Recovered/Not Resolved]
  - Myalgia [Not Recovered/Not Resolved]
  - Injection site bruising [Not Recovered/Not Resolved]
  - Spinal column stenosis [Not Recovered/Not Resolved]
  - Back pain [Not Recovered/Not Resolved]
  - Cough [Not Recovered/Not Resolved]
  - Dyspnoea [Not Recovered/Not Resolved]
  - Drug dose omission [Not Recovered/Not Resolved]
  - Skin discolouration [Not Recovered/Not Resolved]
  - Depression [Recovering/Resolving]
  - Injection site discolouration [Not Recovered/Not Resolved]
  - Mood swings [Not Recovered/Not Resolved]

NARRATIVE: CASE EVENT DATE: 201612
